FAERS Safety Report 6277170-6 (Version None)
Quarter: 2009Q3

REPORT INFORMATION
  Report Type: 
  Country: None (occurrence: None)
  Receive Date: 20090722
  Receipt Date: 20090129
  Transmission Date: 20100115
  Serious: No
  Sender: FDA-Public Use
  Company Number: US-BRISTOL-MYERS SQUIBB COMPANY-14491534

PATIENT
  Age: 39 Year
  Sex: Female

DRUGS (3)
  1. COUMADIN [Suspect]
     Indication: PULMONARY EMBOLISM
     Dates: start: 20081215
  2. LOVENOX [Suspect]
     Indication: PULMONARY EMBOLISM
     Dosage: SOLN FOR INJ
     Dates: start: 20081215
  3. HEPARIN [Concomitant]
     Dates: start: 20081214

REACTIONS (1)
  - INTERNATIONAL NORMALISED RATIO INCREASED [None]
